FAERS Safety Report 18263992 (Version 2)
Quarter: 2020Q3

REPORT INFORMATION
  Report Type: Report from Study
  Country: None (occurrence: HU)
  Receive Date: 20200914
  Receipt Date: 20200917
  Transmission Date: 20201103
  Serious: Yes (Death, Hospitalization)
  Sender: FDA-Public Use
  Company Number: HU-ABBVIE-20K-076-3544545-00

PATIENT
  Age: 71 Year
  Sex: Female

DRUGS (13)
  1. MERCKFORMIN [Concomitant]
     Active Substance: METFORMIN HYDROCHLORIDE
     Indication: DIABETES MELLITUS
     Route: 048
     Dates: start: 2016
  2. VALSACOR [Concomitant]
     Active Substance: VALSARTAN
     Indication: HYPERTENSION
     Dosage: EVENING DOSE: 24 IU
     Route: 048
     Dates: start: 201901
  3. PANTOPRAZOL SANDOZ [Concomitant]
     Active Substance: PANTOPRAZOLE SODIUM
     Indication: PROPHYLAXIS
     Dosage: 1 TABLET AT THE EVENING
     Route: 048
     Dates: start: 2014
  4. DUODOPA [Suspect]
     Active Substance: CARBIDOPA\LEVODOPA
     Dosage: MORNING DOSE: 5 ML; CONTINUOUS DOSE: 3.6 ML/HOUR; EXTRA DOSE: 1.5 ML
     Route: 050
     Dates: end: 2020
  5. INSUMAN COMB [Concomitant]
     Active Substance: INSULIN HUMAN
     Indication: DIABETES MELLITUS
     Dosage: EVENING DOSE: 24 IU
     Route: 058
  6. INSUMAN RAPID [Concomitant]
     Active Substance: INSULIN HUMAN
     Indication: DIABETES MELLITUS
     Dosage: MORNING DOSE: 18 IU, NOON DOSE: 12 IU
     Route: 058
  7. ASPIRIN. [Concomitant]
     Active Substance: ASPIRIN
     Indication: PROPHYLAXIS
     Dosage: 1 TABLET AT THE EVENING
     Route: 048
  8. DUODOPA [Suspect]
     Active Substance: CARBIDOPA\LEVODOPA
     Indication: PARKINSON^S DISEASE
     Dosage: MORNING DOSE: 8 ML; CONTINUOUS DOSE: 3.6 ML/HOUR; EXTRA DOSE: 1.5 ML
     Route: 050
     Dates: start: 20190522
  9. XETER [Concomitant]
     Active Substance: ROSUVASTATIN CALCIUM
     Indication: HYPERCHOLESTEROLAEMIA
     Dosage: 1 TABLET AT THE EVENING
     Route: 048
     Dates: start: 2014
  10. NEUPRO [Concomitant]
     Active Substance: ROTIGOTINE
     Indication: PARKINSON^S DISEASE
     Dosage: 1 PATCH / 24 HOURS
     Route: 062
     Dates: start: 2015
  11. NEBIVOLOL SANDOZ [Concomitant]
     Active Substance: NEBIVOLOL
     Indication: HYPERTENSION
     Route: 048
     Dates: start: 2013
  12. FRONTIN [Concomitant]
     Active Substance: ALPRAZOLAM
     Indication: STRESS
     Dosage: 1 TABLET + 2 TABLET
     Route: 048
     Dates: start: 201901
  13. AMLODIPIN TEVA [Concomitant]
     Active Substance: AMLODIPINE BESYLATE
     Indication: HYPERTENSION
     Dosage: 1 TABLET IN THE EVENING
     Route: 048
     Dates: start: 2014

REACTIONS (12)
  - Fall [Not Recovered/Not Resolved]
  - Device dislocation [Unknown]
  - Fall [Unknown]
  - Death [Fatal]
  - Bradykinesia [Not Recovered/Not Resolved]
  - Intentional product misuse [Unknown]
  - Device placement issue [Unknown]
  - Urinary tract infection [Recovered/Resolved]
  - Haematoma [Not Recovered/Not Resolved]
  - Rib fracture [Not Recovered/Not Resolved]
  - COVID-19 [Not Recovered/Not Resolved]
  - Intentional device misuse [Unknown]

NARRATIVE: CASE EVENT DATE: 2020
